FAERS Safety Report 8573542 (Version 3)
Quarter: 2012Q4

REPORT INFORMATION
  Report Type: 
  Country: US (occurrence: US)
  Receive Date: 20120522
  Receipt Date: 20121214
  Transmission Date: 20130627
  Serious: Yes (Hospitalization, Other)
  Sender: FDA-Public Use
  Company Number: US-PFIZER INC-2012121480

PATIENT
  Age: 72 Year
  Sex: Female
  Weight: 90.7 kg

DRUGS (3)
  1. REVATIO [Suspect]
     Indication: PULMONARY HYPERTENSION
     Dosage: 20 mg, 3x/day
     Route: 048
     Dates: start: 20090414
  2. TRACLEER [Suspect]
     Dosage: UNK
  3. PRILOSEC [Concomitant]
     Dosage: 20 mg, UNK

REACTIONS (3)
  - Fall [Unknown]
  - Visual acuity reduced [Unknown]
  - Eye disorder [Unknown]
